FAERS Safety Report 14258977 (Version 1)
Quarter: 2017Q4

REPORT INFORMATION
  Report Type: Spontaneous
  Country: US (occurrence: US)
  Receive Date: 20171207
  Receipt Date: 20171207
  Transmission Date: 20180321
  Serious: No
  Sender: FDA-Public Use
  Company Number: US-ALLERGAN-1764447US

PATIENT
  Age: 61 Year
  Sex: Female

DRUGS (4)
  1. VIBERZI [Suspect]
     Active Substance: ELUXADOLINE
     Indication: DIARRHOEA
  2. VIBERZI [Suspect]
     Active Substance: ELUXADOLINE
     Indication: COLITIS
     Dosage: 75 MG, BID
     Route: 048
     Dates: start: 20171028
  3. LISINOPRIL. [Concomitant]
     Active Substance: LISINOPRIL
     Indication: HYPERTENSION
     Dosage: UNK
     Route: 048
  4. GLIPIZIDE. [Concomitant]
     Active Substance: GLIPIZIDE
     Indication: DIABETES MELLITUS
     Dosage: UNK
     Route: 048

REACTIONS (3)
  - Blood glucose decreased [Not Recovered/Not Resolved]
  - Off label use [Unknown]
  - Contraindicated drug prescribed [Unknown]

NARRATIVE: CASE EVENT DATE: 20171028
